FAERS Safety Report 12996181 (Version 2)
Quarter: 2016Q4

REPORT INFORMATION
  Report Type: Spontaneous
  Country: CA (occurrence: CA)
  Receive Date: 20161203
  Receipt Date: 20161207
  Transmission Date: 20170207
  Serious: Yes (Hospitalization, Other)
  Sender: FDA-Public Use
  Company Number: CA-BAXTER-2016BAX060273

PATIENT
  Age: 70 Year
  Sex: Female

DRUGS (1)
  1. EXTRANEAL [Suspect]
     Active Substance: CALCIUM CHLORIDE\ICODEXTRIN\MAGNESIUM CHLORIDE\SODIUM CHLORIDE\SODIUM LACTATE
     Indication: PERITONEAL DIALYSIS
     Route: 033

REACTIONS (11)
  - Faeces discoloured [Unknown]
  - Nausea [Unknown]
  - Weight increased [Unknown]
  - Peritonitis [Recovered/Resolved]
  - Dysgeusia [Unknown]
  - Feeding disorder [Unknown]
  - Dehydration [Unknown]
  - Decreased appetite [Not Recovered/Not Resolved]
  - Osteoarthritis [Unknown]
  - Ageusia [Unknown]
  - Vomiting [Unknown]
